FAERS Safety Report 24456026 (Version 2)
Quarter: 2024Q4

REPORT INFORMATION
  Report Type: Spontaneous
  Country: PT (occurrence: PT)
  Receive Date: 20241017
  Receipt Date: 20241018
  Transmission Date: 20250115
  Serious: No
  Sender: ROCHE
  Company Number: None

PATIENT
  Age: 70 Year
  Sex: Female
  Weight: 42.0 kg

DRUGS (4)
  1. RITUXIMAB [Suspect]
     Active Substance: RITUXIMAB
     Indication: COVID-19 immunisation
     Dosage: 528MG EVERY 28 DAYS
     Route: 058
     Dates: start: 20210701
  2. CLEMASTINA [Concomitant]
  3. ACETAMINOPHEN [Concomitant]
     Active Substance: ACETAMINOPHEN
  4. HYDROCORTISONE [Concomitant]
     Active Substance: HYDROCORTISONE

REACTIONS (2)
  - Flushing [Recovered/Resolved]
  - Back pain [Recovered/Resolved]

NARRATIVE: CASE EVENT DATE: 20210729
